FAERS Safety Report 17797548 (Version 1)
Quarter: 2020Q2

REPORT INFORMATION
  Report Type: Report from Study
  Country: PA (occurrence: PA)
  Receive Date: 20200518
  Receipt Date: 20200518
  Transmission Date: 20200714
  Serious: Yes (Hospitalization)
  Sender: FDA-Public Use
  Company Number: PHHY2019PA078470

PATIENT
  Age: 58 Year
  Sex: Male

DRUGS (4)
  1. EXJADE [Suspect]
     Active Substance: DEFERASIROX
     Indication: PRODUCT USED FOR UNKNOWN INDICATION
     Dosage: UNK
     Route: 065
  2. JAKAVI [Suspect]
     Active Substance: RUXOLITINIB
     Dosage: CONSUMING 10MG DESPITE IT SHOULD BE 15MG
     Route: 065
  3. JAKAVI [Suspect]
     Active Substance: RUXOLITINIB
     Dosage: 20 MG, QD
     Route: 065
  4. JAKAVI [Suspect]
     Active Substance: RUXOLITINIB
     Indication: PRODUCT USED FOR UNKNOWN INDICATION
     Dosage: UNK
     Route: 065

REACTIONS (12)
  - White blood cell count increased [Unknown]
  - Headache [Unknown]
  - Abdominal pain [Unknown]
  - Pain in extremity [Unknown]
  - Pain [Unknown]
  - Flatulence [Unknown]
  - Dizziness [Unknown]
  - Night sweats [Unknown]
  - Eructation [Unknown]
  - Arthralgia [Unknown]
  - Incorrect dose administered [Unknown]
  - Splenomegaly [Unknown]
